FAERS Safety Report 8988938 (Version 3)
Quarter: 2013Q2

REPORT INFORMATION
  Report Type: Spontaneous
  Country: GB (occurrence: GB)
  Receive Date: 20121228
  Receipt Date: 20130425
  Transmission Date: 20140414
  Serious: Yes (Hospitalization, Other)
  Sender: FDA-Public Use
  Company Number: PHFR2012GB006625

PATIENT
  Age: 32 Year
  Sex: Female

DRUGS (6)
  1. CLOZARIL [Suspect]
     Indication: SCHIZOPHRENIA
     Dosage: 450 MG, DAILY
     Route: 048
     Dates: start: 20070830
  2. LITHIUM CARBONATE [Concomitant]
     Dosage: 1200 MG, DAILY
     Route: 048
  3. QUETIAPINE [Concomitant]
     Dosage: 425 MG, DAILY
     Route: 048
  4. GABAPENTIN [Concomitant]
     Dosage: 900 MG, DAILY
     Route: 048
  5. SODIUM VALPROATE [Concomitant]
     Dosage: 1000 MG, DAILY
     Route: 048
  6. SERTRALINE [Concomitant]
     Dosage: 100 MG, DAILY
     Route: 048

REACTIONS (5)
  - Cellulitis [Recovered/Resolved]
  - Skin infection [Unknown]
  - White blood cell count increased [Unknown]
  - Neutrophil count increased [Unknown]
  - Sepsis [Unknown]
